FAERS Safety Report 12991371 (Version 1)
Quarter: 2016Q4

REPORT INFORMATION
  Report Type: Spontaneous
  Country: US (occurrence: US)
  Receive Date: 20161201
  Receipt Date: 20161201
  Transmission Date: 20170207
  Serious: Yes (Other)
  Sender: FDA-Public Use
  Company Number: US-ENDO PHARMACEUTICALS INC.-2016-002980

PATIENT
  Sex: Female

DRUGS (7)
  1. ALPRAZOLAM. [Suspect]
     Active Substance: ALPRAZOLAM
     Indication: PANIC ATTACK
     Route: 065
     Dates: start: 201603, end: 2016
  2. ALPRAZOLAM. [Suspect]
     Active Substance: ALPRAZOLAM
     Indication: ANXIETY
     Route: 065
     Dates: start: 2016, end: 2016
  3. ALPRAZOLAM IR TABLETS 0.5MG [Suspect]
     Active Substance: ALPRAZOLAM
     Route: 065
     Dates: end: 20160227
  4. ALPRAZOLAM. [Suspect]
     Active Substance: ALPRAZOLAM
     Route: 065
     Dates: start: 2016, end: 201604
  5. ALPRAZOLAM IR TABLETS 0.5MG [Suspect]
     Active Substance: ALPRAZOLAM
     Route: 065
     Dates: start: 2016, end: 201604
  6. ALPRAZOLAM IR TABLETS 0.5MG [Suspect]
     Active Substance: ALPRAZOLAM
     Indication: PANIC ATTACK
     Route: 065
     Dates: start: 2016, end: 2016
  7. ALPRAZOLAM IR TABLETS 0.5MG [Suspect]
     Active Substance: ALPRAZOLAM
     Indication: ANXIETY
     Route: 065
     Dates: start: 2016, end: 2016

REACTIONS (5)
  - Anxiety [Unknown]
  - Intentional product use issue [Recovered/Resolved]
  - Therapy cessation [Not Recovered/Not Resolved]
  - Insomnia [Unknown]
  - Drug ineffective [Unknown]

NARRATIVE: CASE EVENT DATE: 201603
